FAERS Safety Report 5118639-7 (Version None)
Quarter: 2006Q4

REPORT INFORMATION
  Report Type: 
  Country: None (occurrence: None)
  Receive Date: 20061002
  Receipt Date: 20060928
  Transmission Date: 20070319
  Serious: Yes (Hospitalization)
  Sender: FDA-Public Use
  Company Number: FR-GLAXOSMITHKLINE-B0440119A

PATIENT
  Age: 82 Year
  Sex: Female

DRUGS (8)
  1. AUGMENTIN '125' [Suspect]
     Dosage: 1G THREE TIMES PER DAY
     Route: 042
     Dates: start: 20060801, end: 20060802
  2. PLAVIX [Concomitant]
     Dosage: 1UNIT PER DAY
     Route: 065
  3. RAMIPRIL [Concomitant]
     Dosage: 2.5MG PER DAY
     Route: 065
  4. ASPIRIN [Concomitant]
     Dosage: 1UNIT PER DAY
     Route: 065
  5. TENORMIN [Concomitant]
     Dosage: 100MG PER DAY
     Route: 065
  6. PRAVASTATIN [Concomitant]
     Dosage: 40MG PER DAY
     Route: 065
  7. OMEPRAZOLE [Concomitant]
     Dosage: 20MG PER DAY
     Route: 065
  8. CHONDROSULF [Concomitant]
     Dosage: 2UNIT PER DAY
     Route: 065

REACTIONS (4)
  - HYPERSENSITIVITY [None]
  - HYPOTENSION [None]
  - SHOCK [None]
  - URTICARIA [None]
